FAERS Safety Report 18157989 (Version 1)
Quarter: 2020Q3

REPORT INFORMATION
  Report Type: Spontaneous
  Country: US (occurrence: US)
  Receive Date: 20200817
  Receipt Date: 20200817
  Transmission Date: 20201103
  Serious: No
  Sender: FDA-Public Use
  Company Number: US-MEDEXUS PHARMA, INC.-2019MED00217

PATIENT
  Sex: Female
  Weight: 67.12 kg

DRUGS (1)
  1. RASUVO [Suspect]
     Active Substance: METHOTREXATE SODIUM
     Indication: BIRDSHOT CHORIORETINOPATHY
     Dosage: 20 MG, INJECTED INTO ABDOMEN
     Dates: start: 2017

REACTIONS (4)
  - Device failure [Unknown]
  - Weight increased [Unknown]
  - Product use in unapproved indication [Not Recovered/Not Resolved]
  - Product dose omission issue [Unknown]
